FAERS Safety Report 7372615-2 (Version None)
Quarter: 2011Q1

REPORT INFORMATION
  Report Type: 
  Country: None (occurrence: None)
  Receive Date: 20110316
  Receipt Date: 20110307
  Transmission Date: 20110831
  Serious: Yes (Other)
  Sender: FDA-Public Use
  Company Number: 2010SP062384

PATIENT
  Age: 45 Year
  Sex: Female
  Weight: 63.05 kg

DRUGS (1)
  1. NUVARING [Suspect]
     Indication: CONTRACEPTION
     Dates: end: 20081201

REACTIONS (3)
  - BLINDNESS UNILATERAL [None]
  - RETINAL VEIN OCCLUSION [None]
  - THROMBOSIS [None]
